FAERS Safety Report 20645633 (Version 1)
Quarter: 2022Q1

REPORT INFORMATION
  Report Type: Spontaneous
  Country: JP (occurrence: JP)
  Receive Date: 20220328
  Receipt Date: 20220328
  Transmission Date: 20220424
  Serious: Yes (Death)
  Sender: FDA-Public Use
  Company Number: JP-shionogi-202203122_SYP_P_1

PATIENT
  Age: 77 Year
  Sex: Female

DRUGS (1)
  1. SYMPROIC [Suspect]
     Active Substance: NALDEMEDINE
     Indication: Constipation
     Dosage: UNKNOWN; UNKNOWN
     Route: 048

REACTIONS (1)
  - Pancreatic carcinoma [Fatal]
